FAERS Safety Report 4604252-4 (Version None)
Quarter: 2005Q1

REPORT INFORMATION
  Report Type: 
  Country: None (occurrence: None)
  Receive Date: 20050214
  Receipt Date: 20041110
  Transmission Date: 20050727
  Serious: No
  Sender: FDA-Public Use
  Company Number: USA040977461

PATIENT
  Age: 83 Year
  Sex: Male

DRUGS (5)
  1. CIALIS [Suspect]
     Indication: ERECTILE DYSFUNCTION
     Dosage: 10 MG
     Dates: start: 20040901
  2. BENICAR [Concomitant]
  3. ACIPHEX [Concomitant]
  4. ASPIRIN [Concomitant]
  5. PREVACID [Concomitant]

REACTIONS (4)
  - FLUSHING [None]
  - GASTROOESOPHAGEAL REFLUX DISEASE [None]
  - INSOMNIA [None]
  - PAIN IN EXTREMITY [None]
